FAERS Safety Report 23306360 (Version 1)
Quarter: 2023Q4

REPORT INFORMATION
  Report Type: Spontaneous
  Country: US (occurrence: US)
  Receive Date: 20231218
  Receipt Date: 20231218
  Transmission Date: 20240109
  Serious: Yes (Hospitalization, Other)
  Sender: FDA-Public Use
  Company Number: US-PFIZER INC-PV202300105438

PATIENT

DRUGS (2)
  1. OZEMPIC [Suspect]
     Active Substance: SEMAGLUTIDE
     Indication: Product used for unknown indication
     Dosage: UNK
     Route: 058
  2. PALBOCICLIB [Suspect]
     Active Substance: PALBOCICLIB
     Indication: Product used for unknown indication
     Dosage: 125MG

REACTIONS (9)
  - Constipation [Unknown]
  - Sepsis [Unknown]
  - Pruritus [Unknown]
  - Dyspnoea [Unknown]
  - Palpitations [Unknown]
  - Ear discomfort [Unknown]
  - Sinus congestion [Unknown]
  - Epistaxis [Unknown]
  - Hyperhidrosis [Unknown]
